FAERS Safety Report 8400101-7 (Version None)
Quarter: 2012Q2

REPORT INFORMATION
  Report Type: 
  Country: None (occurrence: None)
  Receive Date: 20120525
  Receipt Date: 20120516
  Transmission Date: 20120825
  Serious: Yes (Hospitalization, Other)
  Sender: FDA-Public Use
  Company Number: 1205136

PATIENT
  Sex: Male

DRUGS (2)
  1. LIDOCAINE HCL [Suspect]
     Indication: ARTHRITIS
     Dosage: ,INJECTION  OTHER
     Route: 050
     Dates: start: 20120113
  2. (CORTICOSTEROIDS) [Concomitant]

REACTIONS (5)
  - PERIPHERAL VASCULAR DISORDER [None]
  - SOFT TISSUE NECROSIS [None]
  - PRODUCT FORMULATION ISSUE [None]
  - SKIN DISCOLOURATION [None]
  - POOR PERIPHERAL CIRCULATION [None]
